FAERS Safety Report 24593227 (Version 1)
Quarter: 2024Q4

REPORT INFORMATION
  Report Type: Spontaneous
  Country: JP (occurrence: JP)
  Receive Date: 20241108
  Receipt Date: 20241108
  Transmission Date: 20250115
  Serious: Yes (Other)
  Sender: UCB
  Company Number: JP-UCBJ-CD202410669UCBPHAPROD

PATIENT
  Age: 15 Year
  Sex: Female

DRUGS (9)
  1. FINTEPLA [Suspect]
     Active Substance: FENFLURAMINE
     Indication: Lennox-Gastaut syndrome
     Dosage: 0.1 MILLIGRAM/KILOGRAM, ONCE DAILY (QD)
     Route: 048
  2. FINTEPLA [Suspect]
     Active Substance: FENFLURAMINE
     Dosage: 0.19 MILLIGRAM/KILOGRAM, ONCE DAILY (QD)
     Route: 048
  3. FINTEPLA [Suspect]
     Active Substance: FENFLURAMINE
     Dosage: 0.15 MILLIGRAM/KILOGRAM, ONCE DAILY (QD)
     Route: 048
  4. FINTEPLA [Suspect]
     Active Substance: FENFLURAMINE
     Dosage: 0.11 MILLIGRAM/KILOGRAM, ONCE DAILY (QD)
     Route: 048
  5. LEVETIRACETAM [Concomitant]
     Active Substance: LEVETIRACETAM
     Indication: Product used for unknown indication
     Route: 048
  6. VALPROATE SODIUM [Concomitant]
     Active Substance: VALPROATE SODIUM
     Indication: Product used for unknown indication
  7. TOPIRAMATE [Concomitant]
     Active Substance: TOPIRAMATE
     Indication: Product used for unknown indication
     Dosage: 2.5 MILLIGRAM/KILOGRAM, ONCE DAILY (QD)
  8. TOPIRAMATE [Concomitant]
     Active Substance: TOPIRAMATE
     Dosage: 1.7 MILLIGRAM/KILOGRAM, ONCE DAILY (QD)
  9. TOPIRAMATE [Concomitant]
     Active Substance: TOPIRAMATE
     Dosage: 0.8 MILLIGRAM/KILOGRAM, ONCE DAILY (QD)

REACTIONS (5)
  - Syncope [Unknown]
  - Diarrhoea [Unknown]
  - Somnolence [Unknown]
  - Decreased appetite [Unknown]
  - Myoclonus [Unknown]
